FAERS Safety Report 6355410-2 (Version None)
Quarter: 2009Q3

REPORT INFORMATION
  Report Type: 
  Country: None (occurrence: None)
  Receive Date: 20090914
  Receipt Date: 20090910
  Transmission Date: 20100115
  Serious: Yes (Hospitalization)
  Sender: FDA-Public Use
  Company Number: FR-WYE-G04416809

PATIENT
  Age: 14 Year
  Sex: Female

DRUGS (2)
  1. ADVIL [Suspect]
     Indication: TONSILLITIS
     Dosage: UNKNOWN
     Route: 048
     Dates: start: 20090908, end: 20090911
  2. AMOXICILLIN [Concomitant]
     Indication: TONSILLITIS
     Dosage: UNKNOWN
     Route: 048
     Dates: start: 20090908

REACTIONS (1)
  - PHARYNGEAL DISORDER [None]
